FAERS Safety Report 19746437 (Version 4)
Quarter: 2022Q1

REPORT INFORMATION
  Report Type: Report from Study
  Country: DE (occurrence: DE)
  Receive Date: 20210825
  Receipt Date: 20220331
  Transmission Date: 20220423
  Serious: Yes (Hospitalization, Other)
  Sender: FDA-Public Use
  Company Number: DE-002147023-NVSC2020DE158398

PATIENT
  Age: 67 Year
  Sex: Female
  Weight: 81.9 kg

DRUGS (6)
  1. IBRANCE [Suspect]
     Active Substance: PALBOCICLIB
     Indication: Breast cancer metastatic
     Dosage: 125 MG, CYCLIC, QD (21 DAYS INTAKE, THAN 7 DAYS PAUSE)
     Route: 048
     Dates: start: 20200817, end: 20210511
  2. IBRANCE [Suspect]
     Active Substance: PALBOCICLIB
     Dosage: 100 MG, CYCLIC, QD (21 DAYS INTAKE, THAN 7 DAYS PAUSE)
     Route: 048
     Dates: start: 20210512, end: 20210719
  3. IBRANCE [Suspect]
     Active Substance: PALBOCICLIB
     Dosage: 100 MG, QD (21 DAYS INTAKE, THAN 7 DAYS PAUSE)
     Dates: start: 20210823
  4. FULVESTRANT [Suspect]
     Active Substance: FULVESTRANT
     Indication: Breast cancer metastatic
     Dosage: 500 MG, Q4W
     Route: 030
     Dates: start: 20200310, end: 20200816
  5. KISQALI [Suspect]
     Active Substance: RIBOCICLIB
     Indication: Breast cancer metastatic
     Dosage: 400 MG, QD, (SCHEMA 21 DAYS INTAKE, 7 DAYS PAUSE)
     Route: 048
     Dates: start: 20200311, end: 20200601
  6. KISQALI [Suspect]
     Active Substance: RIBOCICLIB
     Dosage: 200 MG, QD (SCHEMA 21 DAYS INTAKE, 7 DAYS PAUSE)
     Route: 048
     Dates: start: 20200701, end: 20200723

REACTIONS (5)
  - Pancytopenia [Recovering/Resolving]
  - Transferrin decreased [Recovering/Resolving]
  - Haemoglobin decreased [Recovering/Resolving]
  - Hepatotoxicity [Recovering/Resolving]
  - Dermatitis allergic [Unknown]

NARRATIVE: CASE EVENT DATE: 20200602
